FAERS Safety Report 6420509-9 (Version None)
Quarter: 2009Q4

REPORT INFORMATION
  Report Type: 
  Country: None (occurrence: None)
  Receive Date: 20091029
  Receipt Date: 20091021
  Transmission Date: 20100525
  Serious: Yes (Death, Hospitalization)
  Sender: FDA-Public Use
  Company Number: US-GENENTECH-292732

PATIENT
  Sex: Male
  Weight: 34 kg

DRUGS (5)
  1. SOMATROPIN [Suspect]
     Indication: SEPTO-OPTIC DYSPLASIA
     Dosage: 1.5 MG, 7/WEEK
     Route: 058
     Dates: start: 20040505
  2. L-CARNITINE [Concomitant]
     Indication: DRUG USE FOR UNKNOWN INDICATION
     Dosage: 400 MG, QD
     Route: 048
  3. FLOVENT [Concomitant]
     Indication: DRUG USE FOR UNKNOWN INDICATION
     Dosage: 110 MG, BID
     Route: 048
  4. KEPPRA [Concomitant]
     Indication: DRUG USE FOR UNKNOWN INDICATION
     Dosage: 875 MG, QD
     Route: 048
  5. KLONOPIN [Concomitant]
     Indication: DRUG USE FOR UNKNOWN INDICATION
     Dosage: 2.75 MG, QD

REACTIONS (1)
  - PNEUMONIA [None]
